FAERS Safety Report 4588957-X (Version None)
Quarter: 2005Q1

REPORT INFORMATION
  Report Type: 
  Country: None (occurrence: None)
  Receive Date: 20050125
  Receipt Date: 20040908
  Transmission Date: 20050727
  Serious: No
  Sender: FDA-Public Use
  Company Number: USA030741055

PATIENT
  Age: 86 Year
  Sex: Female
  Weight: 72 kg

DRUGS (2)
  1. FORTEO [Suspect]
     Indication: OSTEOPOROSIS
     Dosage: 20 UG/1 DAY
     Dates: start: 20030702
  2. DARVOCET-N 100 [Concomitant]

REACTIONS (5)
  - ACCIDENTAL OVERDOSE [None]
  - HYPOTENSION [None]
  - INJECTION SITE HAEMORRHAGE [None]
  - INJECTION SITE URTICARIA [None]
  - MEDICATION ERROR [None]
